FAERS Safety Report 12887289 (Version 1)
Quarter: 2016Q4

REPORT INFORMATION
  Report Type: Report from Study
  Country: US (occurrence: US)
  Receive Date: 20161026
  Receipt Date: 20161026
  Transmission Date: 20170207
  Serious: Yes (Death)
  Sender: FDA-Public Use
  Company Number: US-JAZZ-2015-US-018891

PATIENT
  Age: 18 Year
  Sex: Male

DRUGS (20)
  1. FOSCARNET [Concomitant]
     Active Substance: FOSCARNET
     Indication: INFECTION
     Dosage: 5.26 MG, UNK
     Route: 042
     Dates: start: 20150718
  2. VANCOMYCIN [Concomitant]
     Active Substance: VANCOMYCIN
     Indication: INFECTION
     Dosage: 750 MG, UNK
     Route: 042
  3. KEPPRA [Concomitant]
     Active Substance: LEVETIRACETAM
     Indication: SEIZURE
     Dosage: 250 MG 1X/12 HOURS
     Route: 042
     Dates: start: 20150717
  4. ZOFRAN [Concomitant]
     Active Substance: ONDANSETRON HYDROCHLORIDE
     Indication: NAUSEA
     Dosage: 8 MG 1X/6 HOURS
     Route: 042
     Dates: start: 20150720
  5. CYCLOSPORINE. [Concomitant]
     Active Substance: CYCLOSPORINE
     Indication: PROPHYLAXIS AGAINST GRAFT VERSUS HOST DISEASE
     Dosage: 30 MG, UNK
     Route: 042
  6. BICARBONATE [Concomitant]
     Active Substance: BICARBONATE ION
     Indication: ELECTROLYTE IMBALANCE
     Dosage: 40 ML, Q4H
     Route: 042
     Dates: start: 20150719
  7. DEFIBROTIDE (INV) [Suspect]
     Active Substance: DEFIBROTIDE SODIUM
     Indication: VENOOCCLUSIVE LIVER DISEASE
     Dosage: 25 MG/KG, 25MG/KG/DAY
     Route: 042
     Dates: start: 20150717, end: 20150731
  8. CALCIUM [Concomitant]
     Active Substance: CALCIUM
     Indication: HYPONATRAEMIA
     Dosage: 8 MG/ML DAILY DOSE
     Route: 042
     Dates: start: 20150719
  9. DIPHENHYDRAMINE. [Concomitant]
     Active Substance: DIPHENHYDRAMINE
     Indication: PRURITUS
     Dosage: 25 MG AS NEEDED
     Route: 042
     Dates: start: 20150730
  10. PANTOPRAZOLE [Concomitant]
     Active Substance: PANTOPRAZOLE SODIUM
     Indication: GASTRITIS
     Dosage: 40 MG, BID
     Route: 042
     Dates: start: 20150730
  11. ISRADIPINE. [Concomitant]
     Active Substance: ISRADIPINE
     Indication: BLOOD PRESSURE MEASUREMENT
     Dosage: 2.5 MG EVERY 6 HOURS AS NEEDED
     Route: 042
     Dates: start: 20150709
  12. DOCUSATE [Concomitant]
     Active Substance: DOCUSATE
     Indication: CONSTIPATION
     Dosage: 100 MG, UNK
     Route: 048
  13. MICAFUNGIN [Concomitant]
     Active Substance: MICAFUNGIN
     Indication: INFECTION
     Dosage: 75 MG, UNK
     Route: 042
     Dates: start: 20150726
  14. BACTRIM [Concomitant]
     Active Substance: SULFAMETHOXAZOLE\TRIMETHOPRIM
     Indication: INFECTION
     Dosage: 140 MG, BID
     Route: 042
     Dates: start: 20150731
  15. HEPARIN [Concomitant]
     Active Substance: HEPARIN SODIUM
     Indication: CENTRAL VENOUS CATHETERISATION
     Dosage: 30 IU, UNK
     Route: 042
     Dates: start: 20150721
  16. URSODIOL. [Concomitant]
     Active Substance: URSODIOL
     Indication: PROPHYLAXIS
     Dosage: 300 MG, BID
     Route: 042
     Dates: start: 20150618
  17. CEFEPIME [Concomitant]
     Active Substance: CEFEPIME HYDROCHLORIDE
     Indication: INFECTION
     Dosage: 2000 MG, BID
     Route: 042
     Dates: start: 20150629
  18. INSULIN [Concomitant]
     Active Substance: INSULIN NOS
     Indication: HYPERGLYCAEMIA
     Dosage: CONTINUOUS INFUSION
     Route: 042
     Dates: start: 20150721
  19. PROMETHAZINE [Concomitant]
     Active Substance: PROMETHAZINE\PROMETHAZINE HYDROCHLORIDE
     Indication: NAUSEA
     Dosage: 25 MG 1X/6 HOURS
     Route: 042
     Dates: start: 20150618
  20. METHYLPREDNISOLONE. [Concomitant]
     Active Substance: METHYLPREDNISOLONE
     Indication: PULMONARY ALVEOLAR HAEMORRHAGE
     Dosage: 60 MG, BID
     Route: 042

REACTIONS (1)
  - Venoocclusive liver disease [Fatal]

NARRATIVE: CASE EVENT DATE: 20150716
